FAERS Safety Report 15937987 (Version 1)
Quarter: 2019Q1

REPORT INFORMATION
  Report Type: Spontaneous
  Country: US (occurrence: US)
  Receive Date: 20190208
  Receipt Date: 20190208
  Transmission Date: 20190417
  Serious: No
  Sender: FDA-Public Use
  Company Number: US-ROCHE-2158336

PATIENT
  Sex: Female

DRUGS (1)
  1. XOLAIR [Suspect]
     Active Substance: OMALIZUMAB
     Indication: ASTHMA
     Dosage: BENEATH THE SKIN
     Route: 058
     Dates: start: 20060115

REACTIONS (3)
  - Hypoaesthesia [Unknown]
  - Musculoskeletal pain [Unknown]
  - Pain [Unknown]
